FAERS Safety Report 8153722-3 (Version None)
Quarter: 2012Q1

REPORT INFORMATION
  Report Type: 
  Country: None (occurrence: None)
  Receive Date: 20120221
  Receipt Date: 20120215
  Transmission Date: 20120608
  Serious: Yes (Life-Threatening)
  Sender: FDA-Public Use
  Company Number: AT-PFIZER INC-2012041546

PATIENT
  Age: 37 Year
  Sex: Male

DRUGS (1)
  1. CRIZOTINIB [Suspect]

REACTIONS (2)
  - DYSPHAGIA [None]
  - CEREBRAL INFARCTION [None]
